FAERS Safety Report 5696377-X (Version None)
Quarter: 2008Q2

REPORT INFORMATION
  Report Type: 
  Country: None (occurrence: None)
  Receive Date: 20080408
  Receipt Date: 20080328
  Transmission Date: 20081010
  Serious: Yes (Other)
  Sender: FDA-Public Use
  Company Number: CA-PFIZER INC-2008028171

PATIENT
  Age: 36 Year
  Sex: Male

DRUGS (2)
  1. DEPO-TESTOSTERONE [Suspect]
     Indication: OLFACTO GENITAL DYSPLASIA
  2. CALCIUM [Concomitant]

REACTIONS (2)
  - AGGRESSION [None]
  - OSTEOPOROSIS [None]
